FAERS Safety Report 11190413 (Version 1)
Quarter: 2015Q2

REPORT INFORMATION
  Report Type: Spontaneous
  Country: US (occurrence: US)
  Receive Date: 20150615
  Receipt Date: 20150615
  Transmission Date: 20150821
  Serious: Yes (Hospitalization)
  Sender: FDA-Public Use
  Company Number: US-CREALTA PHARMACEUTICALS-2012S1000012

PATIENT
  Age: 49 Year
  Sex: Male

DRUGS (4)
  1. COLCHICINE. [Concomitant]
     Active Substance: COLCHICINE
     Indication: GOUT
  2. PLAVIX [Concomitant]
     Active Substance: CLOPIDOGREL BISULFATE
     Indication: PRODUCT USED FOR UNKNOWN INDICATION
  3. TYLENOL [Concomitant]
     Active Substance: ACETAMINOPHEN
     Indication: PREMEDICATION
  4. KRYSTEXXA [Suspect]
     Active Substance: PEGLOTICASE
     Indication: GOUT
     Route: 042
     Dates: start: 20110919, end: 20120125

REACTIONS (5)
  - Infusion related reaction [Unknown]
  - Chest pain [Unknown]
  - Therapeutic response decreased [Unknown]
  - Haematemesis [Unknown]
  - Angioplasty [Unknown]

NARRATIVE: CASE EVENT DATE: 20120112
